FAERS Safety Report 12430072 (Version 1)
Quarter: 2016Q2

REPORT INFORMATION
  Report Type: Spontaneous
  Country: DE (occurrence: DE)
  Receive Date: 20160602
  Receipt Date: 20160602
  Transmission Date: 20160815
  Serious: Yes (Other)
  Sender: FDA-Public Use
  Company Number: DE-B.I. PHARMACEUTICALS,INC./RIDGEFIELD-2016-BI-35581BY

PATIENT
  Age: 65 Year
  Sex: Male

DRUGS (1)
  1. KINZALKOMB [Suspect]
     Active Substance: HYDROCHLOROTHIAZIDE\TELMISARTAN
     Indication: PRODUCT USED FOR UNKNOWN INDICATION
     Dosage: 80 MG
     Route: 065
     Dates: start: 2007

REACTIONS (3)
  - Renal failure [Unknown]
  - Dizziness [Unknown]
  - Feeling abnormal [Unknown]
